FAERS Safety Report 24094379 (Version 1)
Quarter: 2024Q3

REPORT INFORMATION
  Report Type: Spontaneous
  Country: CN (occurrence: CN)
  Receive Date: 20240716
  Receipt Date: 20240716
  Transmission Date: 20241017
  Serious: Yes (Other)
  Sender: ROCHE
  Company Number: CN-ROCHE-10000017494

PATIENT
  Age: 61 Year
  Sex: Male

DRUGS (5)
  1. BEVACIZUMAB [Suspect]
     Active Substance: BEVACIZUMAB
     Indication: Non-small cell lung cancer
     Route: 065
  2. IMATINIB [Suspect]
     Active Substance: IMATINIB
     Indication: Non-small cell lung cancer
     Route: 065
  3. ICOTINIB [Concomitant]
     Active Substance: ICOTINIB
  4. SINTILIMAB [Concomitant]
     Active Substance: SINTILIMAB
  5. PEMETREXED [Concomitant]
     Active Substance: PEMETREXED

REACTIONS (2)
  - Disease progression [Unknown]
  - Metastases to liver [Unknown]
